FAERS Safety Report 6630281-5 (Version None)
Quarter: 2010Q1

REPORT INFORMATION
  Report Type: 
  Country: None (occurrence: None)
  Receive Date: 20100311
  Receipt Date: 20100308
  Transmission Date: 20100710
  Serious: Yes (Death, Life-Threatening, Hospitalization)
  Sender: FDA-Public Use
  Company Number: D0066742A

PATIENT
  Sex: Male

DRUGS (6)
  1. DARAPRIM [Suspect]
     Indication: TOXOPLASMOSIS
     Dosage: 25MG TWICE PER DAY
     Route: 048
     Dates: start: 20090306
  2. VALTREX [Suspect]
     Dosage: 1000MG THREE TIMES PER DAY
     Route: 048
     Dates: start: 20090519
  3. COTRIM [Suspect]
     Indication: PROPHYLAXIS
     Route: 065
     Dates: start: 20090311
  4. PARACETAMOL [Suspect]
     Indication: PAIN
     Route: 048
     Dates: start: 20090326
  5. LEUCOVORIN CALCIUM [Suspect]
     Indication: ELECTROLYTE SUBSTITUTION THERAPY
     Route: 065
     Dates: start: 20090306
  6. AMPHOTERICIN B [Suspect]
     Indication: STOMATITIS
     Dosage: 2UNIT FOUR TIMES PER DAY
     Route: 065
     Dates: start: 20090325

REACTIONS (8)
  - BLISTER [None]
  - GENITAL EROSION [None]
  - LIP EROSION [None]
  - MOUTH ULCERATION [None]
  - OCULAR HYPERAEMIA [None]
  - ORAL MUCOSA EROSION [None]
  - RASH MACULAR [None]
  - TOXIC EPIDERMAL NECROLYSIS [None]
